FAERS Safety Report 14141808 (Version 5)
Quarter: 2024Q3

REPORT INFORMATION
  Report Type: Spontaneous
  Country: CO (occurrence: CO)
  Receive Date: 20171030
  Receipt Date: 20240826
  Transmission Date: 20241017
  Serious: Yes (Other)
  Sender: PFIZER
  Company Number: CO-MLMSERVICE-20171018-0925569-1

PATIENT
  Age: 45 Year
  Sex: Female

DRUGS (8)
  1. METHYLPREDNISOLONE [Suspect]
     Active Substance: METHYLPREDNISOLONE
     Indication: Immunosuppression
     Dosage: 500 MG, DAILY
  2. MYCOPHENOLATE SODIUM [Suspect]
     Active Substance: MYCOPHENOLATE SODIUM
     Indication: Immunosuppression
     Dosage: 720 MG, 2X/DAY, EVERY 12 HOURS
  3. MYCOPHENOLATE SODIUM [Suspect]
     Active Substance: MYCOPHENOLATE SODIUM
     Dosage: 360 MG, 3X/DAY
  4. MYCOPHENOLATE SODIUM [Suspect]
     Active Substance: MYCOPHENOLATE SODIUM
     Dosage: 360 MG, 2X/DAY
  5. TACROLIMUS [Suspect]
     Active Substance: TACROLIMUS
     Indication: Immunosuppression
     Dosage: 8 MG, DAILY, TACROLIMUS XL
  6. TACROLIMUS [Suspect]
     Active Substance: TACROLIMUS
     Dosage: 5 MG, DAILY
  7. TACROLIMUS [Suspect]
     Active Substance: TACROLIMUS
     Dosage: 3 MG, DAILY
  8. PREDNISONE [Suspect]
     Active Substance: PREDNISONE
     Indication: Immunosuppression
     Dosage: 10 MG, DAILY

REACTIONS (5)
  - Malacoplakia vesicae [Recovered/Resolved]
  - Urinary tract infection [Unknown]
  - Escherichia infection [Unknown]
  - Complications of transplanted kidney [Unknown]
  - Tubulointerstitial nephritis [Unknown]
